FAERS Safety Report 4932118-9 (Version None)
Quarter: 2006Q1

REPORT INFORMATION
  Report Type: 
  Country: None (occurrence: None)
  Receive Date: 20060227
  Receipt Date: 20060217
  Transmission Date: 20060701
  Serious: Yes (Disabling)
  Sender: FDA-Public Use
  Company Number: 2006S1000038

PATIENT
  Age: 14 Day
  Sex: Male

DRUGS (10)
  1. INOMAX [Suspect]
     Indication: LUNG DISORDER
     Dosage: 5 PPM; CONT INH
     Route: 055
     Dates: start: 20060202
  2. INOMAX [Suspect]
     Indication: PROPHYLAXIS
     Dosage: 5 PPM; CONT INH
     Route: 055
     Dates: start: 20060202
  3. AMPICILLIN [Concomitant]
  4. AMIKACIN [Concomitant]
  5. CAFFEINE (CAFFEINE) [Concomitant]
  6. CAFFEINE (CAFFEINE) [Concomitant]
  7. FUROSEMIDE [Concomitant]
  8. SODIUM BICARBONATE IN PLASTIC CONTAINER [Concomitant]
  9. ALBUMIN (HUMAN) [Concomitant]
  10. DOPAMINE HCL [Concomitant]

REACTIONS (7)
  - BETA HAEMOLYTIC STREPTOCOCCAL INFECTION [None]
  - CEREBRAL HAEMORRHAGE [None]
  - CHORIOAMNIONITIS [None]
  - NEONATAL DISORDER [None]
  - NERVOUS SYSTEM DISORDER [None]
  - PERIVENTRICULAR LEUKOMALACIA [None]
  - ULTRASOUND SKULL ABNORMAL [None]
